FAERS Safety Report 8043504-5 (Version None)
Quarter: 2012Q1

REPORT INFORMATION
  Report Type: 
  Country: None (occurrence: None)
  Receive Date: 20120112
  Receipt Date: 20120110
  Transmission Date: 20120608
  Serious: Yes (Other)
  Sender: FDA-Public Use
  Company Number: US-PFIZER INC-2012007823

PATIENT
  Sex: Male

DRUGS (1)
  1. CHANTIX [Suspect]
     Dosage: UNK

REACTIONS (11)
  - MIGRAINE [None]
  - DECREASED APPETITE [None]
  - ABNORMAL BEHAVIOUR [None]
  - RESPIRATORY TRACT CONGESTION [None]
  - HAEMOPTYSIS [None]
  - OSTEOMYELITIS [None]
  - ORAL INFECTION [None]
  - PURULENT DISCHARGE [None]
  - WEIGHT DECREASED [None]
  - HEADACHE [None]
  - HYPOKINESIA [None]
